FAERS Safety Report 10901132 (Version 3)
Quarter: 2015Q2

REPORT INFORMATION
  Report Type: Report from Study
  Country: JP (occurrence: JP)
  Receive Date: 20150310
  Receipt Date: 20150421
  Transmission Date: 20150821
  Serious: Yes (Death, Hospitalization, Other)
  Sender: FDA-Public Use
  Company Number: JP-PFIZER INC-2015072590

PATIENT
  Age: 64 Year
  Sex: Female
  Weight: 52 kg

DRUGS (9)
  1. TYGACIL [Suspect]
     Active Substance: TIGECYCLINE
     Indication: CHOLECYSTITIS
     Dosage: 50 MG, 2X/DAY (AT 10 AND AT 22)
     Route: 041
     Dates: start: 20141023, end: 20141104
  2. SANDOSTATIN [Concomitant]
     Active Substance: OCTREOTIDE ACETATE
     Dosage: 100 ?G, DAILY
     Dates: start: 20141018
  3. FUROSEMIDE. [Concomitant]
     Active Substance: FUROSEMIDE
     Indication: PLEURAL EFFUSION
     Dosage: 20 MG, DAILY
     Dates: start: 20141011
  4. TIENAM [Concomitant]
     Active Substance: CILASTATIN SODIUM\IMIPENEM
     Indication: INFECTION
     Dosage: UNK
     Dates: start: 20141105
  5. TYGACIL [Suspect]
     Active Substance: TIGECYCLINE
     Indication: PERITONITIS
     Dosage: 150 MG, DAILY (100 MG AT 10 AND 50 MG AT 22)
     Route: 041
     Dates: start: 20141022, end: 20141022
  6. ANAEMETRO [Concomitant]
     Active Substance: METRONIDAZOLE
     Dosage: 500 MG, 3X/DAY
     Dates: start: 20141028
  7. OMEPRAZOLE. [Concomitant]
     Active Substance: OMEPRAZOLE
     Dosage: 20 MG, 2X/DAY
     Dates: start: 20141013
  8. DALACIN S [Concomitant]
     Dosage: 600 MG, 3X/DAY
     Dates: start: 20141007
  9. POLARAMINE [Concomitant]
     Active Substance: DEXCHLORPHENIRAMINE MALEATE
     Dosage: UNK
     Dates: start: 20141023

REACTIONS (1)
  - Pathogen resistance [Fatal]

NARRATIVE: CASE EVENT DATE: 20141118
